FAERS Safety Report 7411381-9 (Version None)
Quarter: 2011Q2

REPORT INFORMATION
  Report Type: 
  Country: None (occurrence: None)
  Receive Date: 20110413
  Receipt Date: 20100706
  Transmission Date: 20111010
  Serious: No
  Sender: FDA-Public Use
  Company Number: US-BRISTOL-MYERS SQUIBB COMPANY-15180144

PATIENT
  Sex: Male

DRUGS (6)
  1. CADUET [Concomitant]
  2. ERBITUX [Suspect]
     Indication: COLON CANCER
  3. METFORMIN [Concomitant]
  4. ACTOS [Concomitant]
  5. ACCUPRIL [Concomitant]
  6. GLUCOTROL [Concomitant]

REACTIONS (3)
  - SKIN FISSURES [None]
  - PAIN IN EXTREMITY [None]
  - ONYCHOCLASIS [None]
